FAERS Safety Report 5711009-X (Version None)
Quarter: 2008Q2

REPORT INFORMATION
  Report Type: 
  Country: None (occurrence: None)
  Receive Date: 20080421
  Receipt Date: 20080417
  Transmission Date: 20081010
  Serious: Yes (Other)
  Sender: FDA-Public Use
  Company Number: US-RB-000820-08

PATIENT
  Sex: Female

DRUGS (3)
  1. SUBOXONE [Suspect]
     Route: 060
     Dates: start: 20080326, end: 20080326
  2. SUBOXONE [Suspect]
     Route: 060
     Dates: start: 20080327, end: 20080327
  3. REQUIP [Suspect]

REACTIONS (3)
  - ABASIA [None]
  - APHASIA [None]
  - PSYCHOMOTOR SKILLS IMPAIRED [None]
